FAERS Safety Report 12108608 (Version 1)
Quarter: 2016Q1

REPORT INFORMATION
  Report Type: Spontaneous
  Country: US (occurrence: US)
  Receive Date: 20160224
  Receipt Date: 20160224
  Transmission Date: 20160526
  Serious: No
  Sender: FDA-Public Use
  Company Number: US-BIOGEN-2015BI096857

PATIENT
  Age: 40 Year
  Sex: Female

DRUGS (2)
  1. TECFIDERA [Suspect]
     Active Substance: DIMETHYL FUMARATE
     Indication: MULTIPLE SCLEROSIS
     Route: 048
     Dates: start: 20150629, end: 20150708
  2. AUBAGIO [Concomitant]
     Active Substance: TERIFLUNOMIDE
     Indication: MULTIPLE SCLEROSIS

REACTIONS (16)
  - Hypersensitivity [Recovered/Resolved]
  - Vomiting [Recovered/Resolved]
  - Dyspepsia [Recovered/Resolved]
  - Formication [Recovered/Resolved]
  - Nausea [Unknown]
  - Erythema [Unknown]
  - Gastric disorder [Unknown]
  - Feeling hot [Unknown]
  - Crohn^s disease [Unknown]
  - Headache [Unknown]
  - Diarrhoea [Unknown]
  - Migraine [Unknown]
  - Skin burning sensation [Unknown]
  - Pruritus generalised [Recovered/Resolved]
  - Pneumonia [Not Recovered/Not Resolved]
  - Hypertension [Not Recovered/Not Resolved]

NARRATIVE: CASE EVENT DATE: 20150630
